FAERS Safety Report 8378770-X (Version None)
Quarter: 2012Q2

REPORT INFORMATION
  Report Type: 
  Country: None (occurrence: None)
  Receive Date: 20120522
  Receipt Date: 20111101
  Transmission Date: 20120825
  Serious: Yes (Hospitalization)
  Sender: FDA-Public Use
  Company Number: IL-AMGEN-ISRSP2011070083

PATIENT
  Age: 44 Year
  Sex: Female

DRUGS (2)
  1. ANTINEOPLASTIC AGENTS [Concomitant]
     Indication: BREAST CANCER
     Dosage: UNK UNK, Q3WK
  2. NEULASTIM [Suspect]
     Indication: PROPHYLAXIS
     Dosage: UNK UNK, Q3WK

REACTIONS (2)
  - ABSCESS [None]
  - DRUG INEFFECTIVE [None]
